FAERS Safety Report 7634052-2 (Version None)
Quarter: 2011Q3

REPORT INFORMATION
  Report Type: 
  Country: None (occurrence: None)
  Receive Date: 20110725
  Receipt Date: 20110718
  Transmission Date: 20111222
  Serious: Yes (Death)
  Sender: FDA-Public Use
  Company Number: RU-ABBOTT-11P-251-0839320-00

PATIENT
  Age: 31 Year
  Sex: Female

DRUGS (1)
  1. LEUPROLIDE ACETATE [Suspect]
     Indication: ENDOMETRIOSIS

REACTIONS (1)
  - CEREBROVASCULAR ACCIDENT [None]
